FAERS Safety Report 7863895-5 (Version None)
Quarter: 2011Q4

REPORT INFORMATION
  Report Type: 
  Country: None (occurrence: None)
  Receive Date: 20111028
  Receipt Date: 20111019
  Transmission Date: 20120403
  Serious: No
  Sender: FDA-Public Use
  Company Number: US-BIOGENIDEC-2011BI040030

PATIENT
  Age: 50 Year
  Sex: Male

DRUGS (4)
  1. AVONEX [Concomitant]
     Route: 030
     Dates: start: 20100301
  2. TYSABRI [Suspect]
     Indication: MULTIPLE SCLEROSIS
     Route: 042
     Dates: start: 20100312, end: 20110707
  3. TYSABRI [Suspect]
     Route: 042
     Dates: start: 20080514, end: 20081222
  4. AVONEX [Concomitant]
     Indication: MULTIPLE SCLEROSIS
     Route: 030

REACTIONS (1)
  - HEPATIC FUNCTION ABNORMAL [None]
